FAERS Safety Report 5919036-4 (Version None)
Quarter: 2008Q4

REPORT INFORMATION
  Report Type: 
  Country: None (occurrence: None)
  Receive Date: 20081010
  Receipt Date: 20080929
  Transmission Date: 20090506
  Serious: Yes (Hospitalization)
  Sender: FDA-Public Use
  Company Number: 2008BI023537

PATIENT
  Age: 48 Year
  Sex: Female

DRUGS (9)
  1. TYSABRI [Suspect]
     Indication: MULTIPLE SCLEROSIS
     Dosage: 300 MG;QM;IV
     Route: 042
     Dates: start: 20070608, end: 20080807
  2. OXYBUTYNINE [Concomitant]
  3. HEXAQUINE [Concomitant]
  4. RIVOTRIL [Concomitant]
  5. XYZAL [Concomitant]
  6. KALEORID [Concomitant]
  7. PRAZEPAM [Concomitant]
  8. NEXIUM [Concomitant]
  9. AVONEX [Concomitant]

REACTIONS (24)
  - ANAEMIA [None]
  - ATELECTASIS [None]
  - CEREBELLAR SYNDROME [None]
  - CHILLS [None]
  - CHOLESTASIS [None]
  - CYTOLYTIC HEPATITIS [None]
  - DIARRHOEA [None]
  - DYSPHAGIA [None]
  - HEPATIC STEATOSIS [None]
  - HOT FLUSH [None]
  - HYPERHIDROSIS [None]
  - HYPOXIA [None]
  - ILL-DEFINED DISORDER [None]
  - INFLAMMATION [None]
  - MICTURITION DISORDER [None]
  - MUSCLE SPASMS [None]
  - NAUSEA [None]
  - NEUROLOGICAL SYMPTOM [None]
  - NO THERAPEUTIC RESPONSE [None]
  - PLEURAL EFFUSION [None]
  - PLEURAL INFECTION [None]
  - PLEURISY [None]
  - THROMBOCYTHAEMIA [None]
  - WEIGHT DECREASED [None]
